FAERS Safety Report 16113408 (Version 2)
Quarter: 2019Q2

REPORT INFORMATION
  Report Type: Spontaneous
  Country: US (occurrence: US)
  Receive Date: 20190325
  Receipt Date: 20190403
  Transmission Date: 20190711
  Serious: No
  Sender: FDA-Public Use
  Company Number: US-PFIZER INC-2019122748

PATIENT
  Age: 70 Year
  Sex: Female

DRUGS (2)
  1. XANAX [Suspect]
     Active Substance: ALPRAZOLAM
     Dosage: HALF OF 0.25MG
     Dates: start: 2018
  2. XANAX [Suspect]
     Active Substance: ALPRAZOLAM
     Indication: ANXIETY
     Dosage: 0.25 MG, DAILY ONE EXTRA PILL PER WEEK AS NEEDED

REACTIONS (8)
  - Anxiety [Unknown]
  - Migraine [Unknown]
  - Aphasia [Unknown]
  - Product use issue [Unknown]
  - Eye pain [Unknown]
  - Intentional product use issue [Unknown]
  - Panic attack [Unknown]
  - Visual impairment [Unknown]

NARRATIVE: CASE EVENT DATE: 2018
